FAERS Safety Report 16990672 (Version 2)
Quarter: 2019Q4

REPORT INFORMATION
  Report Type: Spontaneous
  Country: GR (occurrence: GR)
  Receive Date: 20191104
  Receipt Date: 20191112
  Transmission Date: 20200122
  Serious: Yes (Life-Threatening)
  Sender: FDA-Public Use
  Company Number: GR-ASTRAZENECA-2019SF56689

PATIENT
  Age: 92 Year
  Sex: Female

DRUGS (3)
  1. FLECAINIDE [Interacting]
     Active Substance: FLECAINIDE
     Indication: ATRIAL FIBRILLATION
     Route: 065
  2. QUETIAPINE. [Suspect]
     Active Substance: QUETIAPINE
     Route: 048
  3. MEMANTINE. [Suspect]
     Active Substance: MEMANTINE
     Route: 065

REACTIONS (5)
  - Electrocardiogram QT prolonged [Recovered/Resolved]
  - Device malfunction [Recovered/Resolved]
  - Toxicity to various agents [Recovered/Resolved]
  - Acute kidney injury [Recovered/Resolved]
  - Drug interaction [Recovered/Resolved]
